FAERS Safety Report 8339016-1 (Version None)
Quarter: 2012Q2

REPORT INFORMATION
  Report Type: 
  Country: None (occurrence: None)
  Receive Date: 20120507
  Receipt Date: 20120425
  Transmission Date: 20120825
  Serious: Yes (Hospitalization)
  Sender: FDA-Public Use
  Company Number: IT-PAR PHARMACEUTICAL, INC-2012SCPR004347

PATIENT

DRUGS (9)
  1. FLUMAZENIL [Concomitant]
     Indication: DRUG DETOXIFICATION
     Dosage: 0.5 MG, / DAY FOR 14 HOURS A DAY
  2. LORMETAZEPAM [Suspect]
     Indication: PRODUCT USED FOR UNKNOWN INDICATION
     Dosage: 12.5 MG, / DAY
     Route: 065
  3. TEMAZEPAM [Suspect]
     Indication: PRODUCT USED FOR UNKNOWN INDICATION
     Dosage: 20 MG, / DAY
     Route: 065
  4. OXCARBAZEPINE [Concomitant]
     Dosage: 600 MG, / DAY
     Route: 065
  5. ZOLPIDEM [Concomitant]
     Indication: PRODUCT USED FOR UNKNOWN INDICATION
     Dosage: 10 MG, / DAY
     Route: 065
  6. CLONAZEPAM [Suspect]
     Indication: PARTIAL SEIZURES
  7. OXCARBAZEPINE [Concomitant]
     Indication: CONVULSION PROPHYLAXIS
     Dosage: 300 MG, / DAY
     Route: 065
  8. OXCARBAZEPINE [Concomitant]
     Dosage: 900 MG, / DAY
     Route: 065
  9. CLONAZEPAM [Suspect]
     Indication: PRODUCT USED FOR UNKNOWN INDICATION
     Dosage: 12.5 MG, / DAY
     Route: 065

REACTIONS (2)
  - PARTIAL SEIZURES [None]
  - DRUG ABUSE [None]
